FAERS Safety Report 6954385-2 (Version None)
Quarter: 2010Q3

REPORT INFORMATION
  Report Type: 
  Country: None (occurrence: None)
  Receive Date: 20100829
  Receipt Date: 20100714
  Transmission Date: 20110219
  Serious: No
  Sender: FDA-Public Use
  Company Number: US-ABBOTT-10P-163-0658367-00

PATIENT
  Sex: Male
  Weight: 83.99 kg

DRUGS (3)
  1. NIASPAN [Suspect]
     Indication: HIGH DENSITY LIPOPROTEIN DECREASED
     Route: 048
     Dates: start: 20100713, end: 20100713
  2. NIASPAN [Suspect]
     Indication: LOW DENSITY LIPOPROTEIN INCREASED
  3. ASPIRIN [Concomitant]
     Indication: PROPHYLAXIS
     Route: 048
     Dates: start: 20100713

REACTIONS (10)
  - CHEST PAIN [None]
  - COUGH [None]
  - DYSPNOEA [None]
  - FLUSHING [None]
  - INCREASED UPPER AIRWAY SECRETION [None]
  - LOCALISED OEDEMA [None]
  - NASAL CONGESTION [None]
  - OROPHARYNGEAL PAIN [None]
  - SWELLING FACE [None]
  - VIRAL INFECTION [None]
